FAERS Safety Report 24564306 (Version 1)
Quarter: 2024Q4

REPORT INFORMATION
  Report Type: Spontaneous
  Country: FR (occurrence: FR)
  Receive Date: 20241030
  Receipt Date: 20241030
  Transmission Date: 20250115
  Serious: Yes (Other)
  Sender: AUROBINDO
  Company Number: FR-AFSSAPS-BX2024001961

PATIENT
  Age: 76 Year
  Sex: Female
  Weight: 92.7 kg

DRUGS (24)
  1. CARBOPLATIN [Suspect]
     Active Substance: CARBOPLATIN
     Indication: Papillary serous endometrial carcinoma
     Dosage: 200 MILLIGRAM
     Route: 042
     Dates: start: 20240625, end: 20240625
  2. CARBOPLATIN [Suspect]
     Active Substance: CARBOPLATIN
     Dosage: 197 MILLIGRAM
     Route: 042
     Dates: start: 20240702, end: 20240702
  3. CARBOPLATIN [Suspect]
     Active Substance: CARBOPLATIN
     Dosage: 177 MILLIGRAM
     Route: 042
     Dates: start: 20240709, end: 20240709
  4. CARBOPLATIN [Suspect]
     Active Substance: CARBOPLATIN
     Dosage: 200 MILLIGRAM
     Route: 042
     Dates: start: 20240716, end: 20240716
  5. CARBOPLATIN [Suspect]
     Active Substance: CARBOPLATIN
     Dosage: 200 MILLIGRAM
     Route: 042
     Dates: start: 20240723, end: 20240723
  6. CARBOPLATIN [Suspect]
     Active Substance: CARBOPLATIN
     Dosage: 161 MILLIGRAM
     Route: 042
     Dates: start: 20240813, end: 20240813
  7. CARBOPLATIN [Suspect]
     Active Substance: CARBOPLATIN
     Dosage: 170 MILLIGRAM
     Route: 042
     Dates: start: 20240820, end: 20240820
  8. CARBOPLATIN [Suspect]
     Active Substance: CARBOPLATIN
     Dosage: 179 MILLIGRAM
     Route: 042
     Dates: start: 20240827, end: 20240827
  9. CARBOPLATIN [Suspect]
     Active Substance: CARBOPLATIN
     Dosage: 165 MILLIGRAM
     Route: 042
     Dates: start: 20240903, end: 20240903
  10. CARBOPLATIN [Suspect]
     Active Substance: CARBOPLATIN
     Dosage: 170 MILLIGRAM
     Route: 042
     Dates: start: 20240913, end: 20240913
  11. PACLITAXEL [Suspect]
     Active Substance: PACLITAXEL
     Indication: Papillary serous endometrial carcinoma
     Dosage: 113 MILLIGRAM
     Route: 042
     Dates: start: 20240625, end: 20240625
  12. PACLITAXEL [Suspect]
     Active Substance: PACLITAXEL
     Dosage: 113 MILLIGRAM
     Route: 042
     Dates: start: 20240702, end: 20240702
  13. PACLITAXEL [Suspect]
     Active Substance: PACLITAXEL
     Dosage: 112 MILLIGRAM
     Route: 042
     Dates: start: 20240709, end: 20240709
  14. PACLITAXEL [Suspect]
     Active Substance: PACLITAXEL
     Dosage: 113 MILLIGRAM
     Route: 042
     Dates: start: 20240716, end: 20240716
  15. PACLITAXEL [Suspect]
     Active Substance: PACLITAXEL
     Dosage: 114 MILLIGRAM
     Route: 042
     Dates: start: 20240723, end: 20240723
  16. PACLITAXEL [Suspect]
     Active Substance: PACLITAXEL
     Dosage: 114 MILLIGRAM
     Route: 042
     Dates: start: 20240813, end: 20240813
  17. PACLITAXEL [Suspect]
     Active Substance: PACLITAXEL
     Dosage: 110 MILLIGRAM
     Route: 042
     Dates: start: 20240820, end: 20240820
  18. PACLITAXEL [Suspect]
     Active Substance: PACLITAXEL
     Dosage: 110 MILLIGRAM
     Route: 042
     Dates: start: 20240827, end: 20240827
  19. PACLITAXEL [Suspect]
     Active Substance: PACLITAXEL
     Dosage: 110 MILLIGRAM
     Route: 042
     Dates: start: 20240903, end: 20240903
  20. PACLITAXEL [Suspect]
     Active Substance: PACLITAXEL
     Dosage: 110 MILLIGRAM
     Route: 042
     Dates: start: 20240913, end: 20240913
  21. JEMPERLI [Suspect]
     Active Substance: DOSTARLIMAB\DOSTARLIMAB-GXLY
     Indication: Papillary serous endometrial carcinoma
     Dosage: 500 MILLIGRAM
     Route: 042
     Dates: start: 20240625, end: 20240625
  22. JEMPERLI [Suspect]
     Active Substance: DOSTARLIMAB\DOSTARLIMAB-GXLY
     Dosage: 500 MILLIGRAM
     Route: 042
     Dates: start: 20240716, end: 20240716
  23. JEMPERLI [Suspect]
     Active Substance: DOSTARLIMAB\DOSTARLIMAB-GXLY
     Dosage: 500 MILLIGRAM
     Route: 042
     Dates: start: 20240813, end: 20240813
  24. JEMPERLI [Suspect]
     Active Substance: DOSTARLIMAB\DOSTARLIMAB-GXLY
     Dosage: 500 MILLIGRAM
     Route: 042
     Dates: start: 20240903, end: 20240903

REACTIONS (1)
  - Myocarditis [Recovering/Resolving]

NARRATIVE: CASE EVENT DATE: 20241004
